FAERS Safety Report 4937625-0 (Version None)
Quarter: 2006Q1

REPORT INFORMATION
  Report Type: 
  Country: None (occurrence: None)
  Receive Date: 20060309
  Receipt Date: 20020315
  Transmission Date: 20060701
  Serious: Yes (Hospitalization, Other)
  Sender: FDA-Public Use
  Company Number: CH-MERCK-0203CHE00021

PATIENT
  Age: 76 Year
  Sex: Male
  Weight: 70 kg

DRUGS (5)
  1. VIOXX [Suspect]
     Indication: BACK PAIN
     Route: 048
     Dates: start: 20020225, end: 20020225
  2. ASPIRIN [Concomitant]
     Indication: PROPHYLAXIS
     Route: 048
     Dates: start: 20010101
  3. DORZOLAMIDE HYDROCHLORIDE AND TIMOLOL MALEATE [Concomitant]
     Indication: GLAUCOMA
     Route: 047
     Dates: start: 20010101
  4. MAGNESIUM (UNSPECIFIED) [Concomitant]
     Indication: PROPHYLAXIS
     Route: 048
     Dates: start: 20010101
  5. OMEGA-3 MARINE TRIGLYCERIDES [Concomitant]
     Indication: PROPHYLAXIS
     Route: 048
     Dates: start: 20010101

REACTIONS (4)
  - CEREBROVASCULAR DISORDER [None]
  - COORDINATION ABNORMAL [None]
  - SPEECH DISORDER [None]
  - VERTIGO [None]
